FAERS Safety Report 11049286 (Version 1)
Quarter: 2015Q2

REPORT INFORMATION
  Report Type: Other
  Country: IT (occurrence: IT)
  Receive Date: 20150420
  Receipt Date: 20150420
  Transmission Date: 20150821
  Serious: Yes (Hospitalization)
  Sender: FDA-Public Use
  Company Number: IT-SYMPLMED PHARMACEUTICALS-2015SYMPLMED000011

PATIENT

DRUGS (10)
  1. ATORVASTATIN                       /01326102/ [Concomitant]
     Active Substance: ATORVASTATIN
     Dosage: 40 MG, UNK
  2. NITROGLYCERINE [Concomitant]
     Active Substance: NITROGLYCERIN
  3. VERAPAMIL [Concomitant]
     Active Substance: VERAPAMIL HYDROCHLORIDE
     Dosage: 4 MG, UNK
     Route: 013
     Dates: start: 20130719, end: 20130719
  4. REOPRO [Suspect]
     Active Substance: ABCIXIMAB
     Indication: ANGIOPLASTY
     Dosage: 0.25 MG/KG, SINGLE
     Route: 042
     Dates: start: 20130719, end: 20130719
  5. ACETYLSALICYLIC ACID [Concomitant]
     Active Substance: ASPIRIN
     Dosage: 100 MG, UNK
     Dates: start: 20130719, end: 20130726
  6. HEPARIN SODIUM N [Suspect]
     Active Substance: HEPARIN SODIUM
     Indication: ANGIOPLASTY
     Dosage: 5000 IU, SINGLE
     Route: 042
     Dates: start: 20130719, end: 20130719
  7. IMERON [Concomitant]
     Dosage: 120 UNK, UNK
     Dates: start: 20130719, end: 20130719
  8. COVERLAM [Suspect]
     Active Substance: AMLODIPINE BESYLATE\PERINDOPRIL ARGININE
     Indication: HYPERTENSION
     Dosage: 5MG/5MG, 1 TABLET QD
     Route: 048
     Dates: start: 20130723, end: 20130726
  9. ATENOLOL. [Concomitant]
     Active Substance: ATENOLOL
     Dosage: 25 MG, UNK
  10. PRASUGREL [Concomitant]
     Active Substance: PRASUGREL
     Dosage: 10 MG, UNK
     Dates: start: 20130719, end: 20130726

REACTIONS (4)
  - Petechiae [Recovered/Resolved]
  - Thrombocytopenia [Recovered/Resolved]
  - Haemorrhagic diathesis [Recovered/Resolved]
  - Gingival bleeding [Recovered/Resolved]

NARRATIVE: CASE EVENT DATE: 20130726
